FAERS Safety Report 15563925 (Version 1)
Quarter: 2018Q4

REPORT INFORMATION
  Report Type: Spontaneous
  Country: GB (occurrence: GB)
  Receive Date: 20181030
  Receipt Date: 20181030
  Transmission Date: 20190205
  Serious: Yes (Other)
  Sender: FDA-Public Use
  Company Number: GB-CONCORDIA PHARMACEUTICALS INC.-E2B_00017236

PATIENT
  Age: 62 Year
  Sex: Male

DRUGS (14)
  1. PREDNISOLONE. [Suspect]
     Active Substance: PREDNISOLONE
     Dosage: INITIALLY
  2. CALCICHEW [Concomitant]
     Active Substance: CALCIUM CARBONATE
  3. METFORMIN [Concomitant]
     Active Substance: METFORMIN HYDROCHLORIDE
  4. ACETYLSALICYLIC ACID [Concomitant]
     Active Substance: ASPIRIN
  5. COTRIMOXAZOLE [Concomitant]
     Active Substance: SULFAMETHOXAZOLE\TRIMETHOPRIM
  6. PROGRAF [Concomitant]
     Active Substance: TACROLIMUS\TACROLIMUS ANHYDROUS
  7. BISOPROLOL [Concomitant]
     Active Substance: BISOPROLOL
  8. LANSOPRAZOLE. [Concomitant]
     Active Substance: LANSOPRAZOLE
  9. DOXAZOSIN [Concomitant]
     Active Substance: DOXAZOSIN\DOXAZOSIN MESYLATE
  10. VALSARTAN. [Concomitant]
     Active Substance: VALSARTAN
  11. ATORVASTATIN [Concomitant]
     Active Substance: ATORVASTATIN
  12. PREDNISOLONE. [Suspect]
     Active Substance: PREDNISOLONE
  13. ALENDRONIC ACID [Concomitant]
     Active Substance: ALENDRONIC ACID
  14. EZETIMIBE. [Concomitant]
     Active Substance: EZETIMIBE

REACTIONS (1)
  - Osteonecrosis [Not Recovered/Not Resolved]
